FAERS Safety Report 14730793 (Version 1)
Quarter: 2018Q2

REPORT INFORMATION
  Report Type: Spontaneous
  Country: US (occurrence: US)
  Receive Date: 20180403
  Receipt Date: 20180403
  Transmission Date: 20180711
  Serious: Yes (Death)
  Sender: FDA-Public Use
  Company Number: None

PATIENT
  Age: 57 Year
  Sex: Female

DRUGS (2)
  1. TRACLEER [Suspect]
     Active Substance: BOSENTAN
     Indication: CONNECTIVE TISSUE DISORDER
     Route: 048
     Dates: start: 20141230, end: 20180327
  2. TRACLEER [Suspect]
     Active Substance: BOSENTAN
     Indication: HEART DISEASE CONGENITAL
     Route: 048
     Dates: start: 20141230, end: 20180327

REACTIONS (9)
  - Septic shock [None]
  - Gastrointestinal haemorrhage [None]
  - Duodenal ulcer perforation [None]
  - Respiratory failure [None]
  - Appendicectomy [None]
  - Unresponsive to stimuli [None]
  - Pneumonia [None]
  - Post procedural complication [None]
  - Mental status changes [None]

NARRATIVE: CASE EVENT DATE: 20180328
